FAERS Safety Report 9364446 (Version 3)
Quarter: 2013Q3

REPORT INFORMATION
  Report Type: Report from Study
  Country: DE (occurrence: DE)
  Receive Date: 20130624
  Receipt Date: 20130726
  Transmission Date: 20140515
  Serious: Yes (Other)
  Sender: FDA-Public Use
  Company Number: DE-PFIZER INC-2013183297

PATIENT
  Age: 48 Year
  Sex: Female
  Weight: 89.8 kg

DRUGS (4)
  1. SOMAVERT [Suspect]
     Indication: ACROMEGALY
     Dosage: 10 MG, 1X/DAY, 7 INJECTIONS/WEEK
     Dates: start: 20101006
  2. THYRONAJOD [Concomitant]
     Indication: BLOOD THYROID STIMULATING HORMONE DECREASED
     Dosage: UNK
     Route: 048
     Dates: start: 2008
  3. THYRONAJOD [Concomitant]
     Dosage: UNK
     Route: 048
     Dates: start: 20110503
  4. OCTREOTIDE ACETATE [Concomitant]
     Dosage: UNK
     Dates: start: 20081020, end: 201010

REACTIONS (1)
  - Atrial fibrillation [Recovered/Resolved]
